FAERS Safety Report 22037918 (Version 3)
Quarter: 2023Q1

REPORT INFORMATION
  Report Type: Report from Study
  Country: US (occurrence: US)
  Receive Date: 20230227
  Receipt Date: 20230303
  Transmission Date: 20230418
  Serious: No
  Sender: FDA-Public Use
  Company Number: US-002147023-NVSC2023US040238

PATIENT
  Age: 15 Year
  Sex: Male

DRUGS (1)
  1. OMNITROPE [Suspect]
     Active Substance: SOMATROPIN
     Indication: Hypopituitarism
     Dosage: 2 MG, QD
     Route: 058
     Dates: start: 20230216

REACTIONS (4)
  - Vision blurred [Unknown]
  - Device leakage [Unknown]
  - Incorrect dose administered [Unknown]
  - Device defective [Unknown]

NARRATIVE: CASE EVENT DATE: 20230220
